FAERS Safety Report 8036614-X (Version None)
Quarter: 2012Q1

REPORT INFORMATION
  Report Type: 
  Country: None (occurrence: None)
  Receive Date: 20120111
  Receipt Date: 20120109
  Transmission Date: 20120608
  Serious: Yes (Hospitalization, Disabling, Other)
  Sender: FDA-Public Use
  Company Number: PHHO2010US18675

PATIENT
  Sex: Female
  Weight: 52 kg

DRUGS (6)
  1. PREDNISONE TAB [Concomitant]
     Dosage: 20 MG, UNK
     Dates: start: 20110112
  2. PROGRAF [Suspect]
     Indication: RENAL TRANSPLANT
     Dosage: 2 MG, BID
     Route: 048
     Dates: start: 20101121
  3. PREDNISONE TAB [Concomitant]
     Indication: RENAL TRANSPLANT
     Dosage: 30 MG, UNK
     Route: 048
     Dates: start: 20110101, end: 20110108
  4. CERTICAN [Suspect]
     Indication: RENAL TRANSPLANT
     Dosage: 0.75 MG, BID
     Route: 048
     Dates: start: 20101121, end: 20110111
  5. PREDNISONE TAB [Concomitant]
     Dosage: 25 MG, UNK
     Dates: start: 20110109, end: 20110111
  6. INSULIN [Concomitant]
     Indication: DIABETES MELLITUS
     Dosage: 15 USQ DAILY
     Dates: start: 20101122, end: 20101215

REACTIONS (21)
  - MENTAL STATUS CHANGES [None]
  - SEPTIC SHOCK [None]
  - VOMITING [None]
  - FUNGAL ABSCESS CENTRAL NERVOUS SYSTEM [None]
  - RESPIRATORY FAILURE [None]
  - NAUSEA [None]
  - CONVULSION [None]
  - HYPERGLYCAEMIA [None]
  - DEHYDRATION [None]
  - HYPOPHAGIA [None]
  - HYPOCALCAEMIA [None]
  - URINARY TRACT INFECTION [None]
  - LOWER RESPIRATORY TRACT INFECTION FUNGAL [None]
  - DIABETIC KETOACIDOSIS [None]
  - ASTHENIA [None]
  - FATIGUE [None]
  - DIABETES MELLITUS [None]
  - HYPEROSMOLAR STATE [None]
  - DIARRHOEA [None]
  - DECREASED APPETITE [None]
  - SEPSIS [None]
